FAERS Safety Report 19948592 (Version 1)
Quarter: 2021Q4

REPORT INFORMATION
  Report Type: Spontaneous
  Country: US (occurrence: US)
  Receive Date: 20211012
  Receipt Date: 20211012
  Transmission Date: 20220303
  Serious: No
  Sender: FDA-Public Use
  Company Number: US-IBSA PHARMA INC.-2021-IBS-01814

PATIENT

DRUGS (1)
  1. LICART [Suspect]
     Active Substance: DICLOFENAC EPOLAMINE
     Indication: Pain

REACTIONS (2)
  - Pain [Not Recovered/Not Resolved]
  - Product dose omission issue [Unknown]
